FAERS Safety Report 9202085 (Version 2)
Quarter: 2013Q4

REPORT INFORMATION
  Report Type: Spontaneous
  Country: US (occurrence: US)
  Receive Date: 20130401
  Receipt Date: 20131223
  Transmission Date: 20140711
  Serious: Yes (Other)
  Sender: FDA-Public Use
  Company Number: US-BAYER-2013-039237

PATIENT
  Age: 42 Year
  Sex: Female
  Weight: 92.06 kg

DRUGS (3)
  1. YAZ [Suspect]
     Dosage: UNK
     Dates: start: 200704, end: 201004
  2. YASMIN [Suspect]
     Dosage: UNK
     Dates: start: 200704, end: 201004
  3. OCELLA [Suspect]
     Dosage: UNK
     Dates: start: 200704, end: 201004

REACTIONS (4)
  - Cholelithiasis [None]
  - Injury [None]
  - Pain [None]
  - Emotional distress [None]
